FAERS Safety Report 8588191-2 (Version None)
Quarter: 2012Q3

REPORT INFORMATION
  Report Type: 
  Country: None (occurrence: None)
  Receive Date: 20120803
  Receipt Date: 20120803
  Transmission Date: 20120928
  Serious: Yes (Hospitalization)
  Sender: FDA-Public Use
  Company Number: None

PATIENT
  Age: 59 Year
  Sex: Male
  Weight: 120.6568 kg

DRUGS (3)
  1. TELAPREVIR 375 MG VERTEX [Suspect]
     Indication: HEPATITIS C
     Dosage: 2 TAB TID PO
     Route: 048
     Dates: start: 20111122, end: 20120201
  2. PEGASYS [Suspect]
     Indication: HEPATITIS C
     Dosage: 180MCG SQ WEEKLY OTHER
     Route: 050
     Dates: start: 20111122, end: 20120201
  3. RIBAVIRIN [Suspect]
     Indication: HEPATITIS C
     Dosage: 1200MG PO DAILY OTHER
     Route: 050
     Dates: start: 20111122, end: 20120201

REACTIONS (1)
  - PANCYTOPENIA [None]
